FAERS Safety Report 25171206 (Version 2)
Quarter: 2025Q2

REPORT INFORMATION
  Report Type: Spontaneous
  Country: US (occurrence: US)
  Receive Date: 20250408
  Receipt Date: 20250606
  Transmission Date: 20250716
  Serious: Yes (Other)
  Sender: NOVARTIS
  Company Number: US-002147023-NVSC2025US056284

PATIENT
  Age: 13 Year
  Sex: Female

DRUGS (7)
  1. CANAKINUMAB [Suspect]
     Active Substance: CANAKINUMAB
     Indication: Haemophagocytic lymphohistiocytosis
     Route: 065
     Dates: start: 202305
  2. CANAKINUMAB [Suspect]
     Active Substance: CANAKINUMAB
     Indication: Interstitial lung disease
     Dosage: 10 MG/KG, BIW
     Route: 065
  3. CANAKINUMAB [Suspect]
     Active Substance: CANAKINUMAB
     Route: 065
     Dates: start: 202311
  4. CANAKINUMAB [Suspect]
     Active Substance: CANAKINUMAB
     Route: 065
     Dates: end: 202410
  5. RUXOLITINIB [Suspect]
     Active Substance: RUXOLITINIB
     Indication: Product used for unknown indication
     Route: 065
     Dates: start: 202403
  6. RUXOLITINIB [Suspect]
     Active Substance: RUXOLITINIB
     Route: 065
     Dates: start: 202405
  7. RUXOLITINIB [Suspect]
     Active Substance: RUXOLITINIB
     Dosage: 25 MG, BID
     Route: 065
     Dates: start: 202411

REACTIONS (9)
  - Haemophagocytic lymphohistiocytosis [Unknown]
  - Interstitial lung disease [Unknown]
  - Productive cough [Unknown]
  - Lung diffusion test decreased [Unknown]
  - Autoimmune disorder [Unknown]
  - Urticaria [Unknown]
  - Quality of life decreased [Unknown]
  - Cough [Unknown]
  - Product dose omission issue [Unknown]
